FAERS Safety Report 5524907-7 (Version None)
Quarter: 2007Q4

REPORT INFORMATION
  Report Type: 
  Country: None (occurrence: None)
  Receive Date: 20071119
  Receipt Date: 20071108
  Transmission Date: 20080405
  Serious: Yes (Hospitalization)
  Sender: FDA-Public Use
  Company Number: APP200700330

PATIENT
  Age: 48 Year
  Sex: Female
  Weight: 77 kg

DRUGS (4)
  1. XYLOCAINE [Suspect]
     Indication: ANAESTHESIA
     Dosage: TOPICAL
     Route: 061
     Dates: start: 20071003, end: 20071003
  2. COCAINE (COCAINE) [Suspect]
     Indication: ANAESTHESIA
     Dosage: 4 ML, ONCE, TOPICAL
     Route: 061
     Dates: start: 20071003, end: 20071003
  3. SODIUM BICARBONATE IN PLASTIC CONTAINER [Suspect]
     Indication: ANAESTHESIA
     Dosage: 1 ML, ONCE, TOPICAL
     Route: 061
     Dates: start: 20071003, end: 20071003
  4. NEOSYNEPHRINE (PHENYLEPHRINE HYDROCHLORIDE) [Suspect]
     Indication: ANAESTHESIA
     Dosage: TOPICAL
     Route: 061
     Dates: start: 20071003, end: 20071003

REACTIONS (1)
  - SUPRAVENTRICULAR TACHYCARDIA [None]
